FAERS Safety Report 5493587-1 (Version None)
Quarter: 2007Q4

REPORT INFORMATION
  Report Type: 
  Country: None (occurrence: None)
  Receive Date: 20071015
  Receipt Date: 20070824
  Transmission Date: 20080405
  Serious: No
  Sender: FDA-Public Use
  Company Number: 2007SP002982

PATIENT
  Age: 70 Year
  Weight: 79.3795 kg

DRUGS (5)
  1. LUNESTA [Suspect]
     Indication: INSOMNIA
     Dosage: 3 MG;PRN;ORAL
     Route: 048
  2. SIMVASTATIN [Concomitant]
  3. LISINOPRIL [Concomitant]
  4. ZETIA [Concomitant]
  5. TEMAZEPAM [Concomitant]

REACTIONS (2)
  - DRUG INEFFECTIVE [None]
  - MIDDLE INSOMNIA [None]
